FAERS Safety Report 5892025-4 (Version None)
Quarter: 2008Q3

REPORT INFORMATION
  Report Type: 
  Country: None (occurrence: None)
  Receive Date: 20080918
  Receipt Date: 20080918
  Transmission Date: 20090109
  Serious: Yes (Other)
  Sender: FDA-Public Use
  Company Number: None

PATIENT
  Age: 44 Year
  Sex: Female
  Weight: 86.1834 kg

DRUGS (1)
  1. CYMBALTA [Suspect]
     Indication: DEPRESSION
     Dosage: 60MG DAILY PO
     Route: 048
     Dates: start: 20080301, end: 20080901

REACTIONS (12)
  - ABDOMINAL PAIN UPPER [None]
  - ANGER [None]
  - ANXIETY [None]
  - DIZZINESS [None]
  - HYPERACUSIS [None]
  - MOOD SWINGS [None]
  - NAUSEA [None]
  - PARANOIA [None]
  - PHOTOPHOBIA [None]
  - RESTLESSNESS [None]
  - SUICIDAL IDEATION [None]
  - VOMITING [None]
